FAERS Safety Report 6449609-4 (Version None)
Quarter: 2009Q4

REPORT INFORMATION
  Report Type: 
  Country: None (occurrence: None)
  Receive Date: 20091120
  Receipt Date: 20091109
  Transmission Date: 20100525
  Serious: Yes (Hospitalization)
  Sender: FDA-Public Use
  Company Number: FR-AMGEN-US372486

PATIENT
  Sex: Male
  Weight: 36 kg

DRUGS (2)
  1. ENBREL [Suspect]
     Indication: SPONDYLITIS
     Dosage: 15 MG 2 TIMES WEEKLY WITH AN EPISODE OF ACCIDENTAL OVERDOSE OF 25 MG (SINGLE INJECTION) IN SEP-2009
     Route: 058
     Dates: start: 20090828
  2. VOLTAREN [Suspect]
     Indication: DRUG USE FOR UNKNOWN INDICATION
     Dosage: 100 MG TOTAL DAILY
     Route: 048
     Dates: start: 20081201

REACTIONS (7)
  - BALANCE DISORDER [None]
  - CERUMEN IMPACTION [None]
  - COORDINATION ABNORMAL [None]
  - HYPOACUSIS [None]
  - SKIN EXFOLIATION [None]
  - SKIN PLAQUE [None]
  - VERTIGO [None]
